FAERS Safety Report 20800801 (Version 1)
Quarter: 2022Q2

REPORT INFORMATION
  Report Type: Spontaneous
  Country: DE (occurrence: DE)
  Receive Date: 20220509
  Receipt Date: 20220509
  Transmission Date: 20220720
  Serious: Yes (Death, Other)
  Sender: FDA-Public Use
  Company Number: None

PATIENT
  Age: 74 Year
  Sex: Male

DRUGS (17)
  1. QUETIAPINE [Interacting]
     Active Substance: QUETIAPINE
     Indication: Product used for unknown indication
  2. QUETIAPINE [Interacting]
     Active Substance: QUETIAPINE
     Dosage: UNK UNK, UNK
  3. DONEPEZIL [Interacting]
     Active Substance: DONEPEZIL
     Indication: Product used for unknown indication
  4. TAMSULOSIN [Interacting]
     Active Substance: TAMSULOSIN
     Indication: Product used for unknown indication
  5. ALLOPURINOL [Interacting]
     Active Substance: ALLOPURINOL
     Indication: Product used for unknown indication
  6. BISOPROLOL [Interacting]
     Active Substance: BISOPROLOL
     Indication: Product used for unknown indication
  7. SIMVASTATIN [Interacting]
     Active Substance: SIMVASTATIN
     Indication: Product used for unknown indication
     Route: 048
  8. RISPERDAL [Interacting]
     Active Substance: RISPERIDONE
     Indication: Product used for unknown indication
  9. TORSEMIDE [Interacting]
     Active Substance: TORSEMIDE
     Indication: Product used for unknown indication
  10. LANTUS [Interacting]
     Active Substance: INSULIN GLARGINE
     Indication: Product used for unknown indication
  11. METFORMIN HYDROCHLORIDE [Interacting]
     Active Substance: METFORMIN HYDROCHLORIDE
     Indication: Product used for unknown indication
  12. FALITHROM [Interacting]
     Active Substance: PHENPROCOUMON
     Indication: Product used for unknown indication
  13. LEVOMEPROMAZINE [Interacting]
     Active Substance: LEVOMEPROMAZINE
     Indication: Product used for unknown indication
  14. APIDRA [Interacting]
     Active Substance: INSULIN GLULISINE
     Indication: Product used for unknown indication
  15. CANDESARTAN CILEXETIL\HYDROCHLOROTHIAZIDE [Interacting]
     Active Substance: CANDESARTAN CILEXETIL\HYDROCHLOROTHIAZIDE
     Indication: Product used for unknown indication
  16. SEROQUEL [Interacting]
     Active Substance: QUETIAPINE FUMARATE
     Indication: Product used for unknown indication
     Route: 048
  17. TORSEMIDE [Interacting]
     Active Substance: TORSEMIDE
     Indication: Product used for unknown indication

REACTIONS (20)
  - Death [Fatal]
  - Renal failure [Unknown]
  - Gastrointestinal haemorrhage [Unknown]
  - Intestinal haemorrhage [Unknown]
  - Gastric haemorrhage [Unknown]
  - Drug interaction [Unknown]
  - Adverse drug reaction [Unknown]
  - Blood glucose abnormal [Unknown]
  - Confusional state [Unknown]
  - Cognitive disorder [Unknown]
  - Hyperhidrosis [Unknown]
  - Contusion [Unknown]
  - Balance disorder [Unknown]
  - Cardiovascular disorder [Unknown]
  - Haematoma [Unknown]
  - Blood glucose fluctuation [Unknown]
  - Urinary incontinence [Unknown]
  - Dizziness [Unknown]
  - Fall [Unknown]
  - Contraindicated product administered [Unknown]

NARRATIVE: CASE EVENT DATE: 20170101
